FAERS Safety Report 9781852 (Version 3)
Quarter: 2022Q2

REPORT INFORMATION
  Report Type: Other
  Country: GB (occurrence: GB)
  Receive Date: 20131225
  Receipt Date: 20220412
  Transmission Date: 20220721
  Serious: Yes (Other)
  Sender: FDA-Public Use
  Company Number: GB-ROCHE-1325179

PATIENT
  Age: 60 Year
  Sex: Female

DRUGS (5)
  1. RITUXIMAB [Suspect]
     Active Substance: RITUXIMAB
     Indication: Diffuse large B-cell lymphoma
     Route: 065
     Dates: start: 2008
  2. CYCLOPHOSPHAMIDE [Concomitant]
     Active Substance: CYCLOPHOSPHAMIDE
     Indication: Diffuse large B-cell lymphoma
     Dosage: EIGHT CYCLES
     Route: 065
     Dates: start: 2008
  3. DOXORUBICIN [Concomitant]
     Active Substance: DOXORUBICIN
     Indication: Diffuse large B-cell lymphoma
     Dosage: EIGHT CYCLES
     Route: 065
     Dates: start: 2008
  4. VINCRISTINE [Concomitant]
     Active Substance: VINCRISTINE
     Indication: Diffuse large B-cell lymphoma
     Dosage: EIGHT CYCLES
     Route: 065
     Dates: start: 2008
  5. PREDNISOLONE [Concomitant]
     Active Substance: PREDNISOLONE
     Indication: Diffuse large B-cell lymphoma
     Dosage: EIGHT CYCLES
     Route: 065
     Dates: start: 2008

REACTIONS (1)
  - Peripheral T-cell lymphoma unspecified [Unknown]

NARRATIVE: CASE EVENT DATE: 20110101
